FAERS Safety Report 20084026 (Version 1)
Quarter: 2021Q4

REPORT INFORMATION
  Report Type: Spontaneous
  Country: US (occurrence: US)
  Receive Date: 20211118
  Receipt Date: 20211118
  Transmission Date: 20220303
  Serious: No
  Sender: FDA-Public Use
  Company Number: US-BRISTOL-MYERS SQUIBB COMPANY-BMS-2021-120798

PATIENT
  Age: 73 Year
  Sex: Female
  Weight: 41.723 kg

DRUGS (1)
  1. ORENCIA [Suspect]
     Active Substance: ABATACEPT
     Indication: Rheumatoid arthritis
     Dosage: UNK UNK, QWK
     Route: 058
     Dates: start: 202110

REACTIONS (2)
  - Device leakage [Unknown]
  - Incorrect dose administered [Unknown]
